FAERS Safety Report 6756940-1 (Version None)
Quarter: 2010Q2

REPORT INFORMATION
  Report Type: 
  Country: None (occurrence: None)
  Receive Date: 20100604
  Receipt Date: 20100524
  Transmission Date: 20101027
  Serious: Yes (Other)
  Sender: FDA-Public Use
  Company Number: GB-WATSON-2010-07221

PATIENT

DRUGS (3)
  1. BETAMETHASONE SODIUM PHOSPHATE [Suspect]
     Indication: PLASMACYTOSIS
     Dosage: UNK
     Route: 061
  2. METHOTREXATE [Suspect]
     Indication: PLASMACYTOSIS
     Dosage: UNK
     Route: 061
  3. TACROLIMUS [Suspect]
     Indication: PLASMACYTOSIS
     Dosage: UNK
     Route: 061

REACTIONS (1)
  - SQUAMOUS CELL CARCINOMA [None]
